FAERS Safety Report 8254966-2 (Version None)
Quarter: 2012Q2

REPORT INFORMATION
  Report Type: 
  Country: None (occurrence: None)
  Receive Date: 20120403
  Receipt Date: 20120329
  Transmission Date: 20120825
  Serious: No
  Sender: FDA-Public Use
  Company Number: US-PFIZER INC-2012081005

PATIENT
  Sex: Female

DRUGS (4)
  1. LYRICA [Suspect]
     Indication: POST HERPETIC NEURALGIA
     Dosage: 50 MG, 2X/DAY
     Route: 048
  2. LYRICA [Suspect]
     Dosage: 75 MG, 2X/DAY
     Route: 048
  3. LYRICA [Suspect]
     Dosage: 150 MG, 2X/DAY
     Route: 048
  4. LORTAB [Concomitant]
     Dosage: UNK

REACTIONS (2)
  - DIARRHOEA [None]
  - PAIN [None]
